FAERS Safety Report 18786203 (Version 2)
Quarter: 2021Q1

REPORT INFORMATION
  Report Type: Spontaneous
  Country: US (occurrence: US)
  Receive Date: 20210125
  Receipt Date: 20210204
  Transmission Date: 20210419
  Serious: No
  Sender: FDA-Public Use
  Company Number: US-ASTRAZENECA-2021A008702

PATIENT
  Age: 25286 Day
  Sex: Male
  Weight: 99.8 kg

DRUGS (1)
  1. BYDUREON BCISE [Suspect]
     Active Substance: EXENATIDE
     Indication: GLYCOSYLATED HAEMOGLOBIN
     Route: 065

REACTIONS (4)
  - Intentional device misuse [Unknown]
  - Incorrect dose administered by device [Unknown]
  - Device leakage [Unknown]
  - Injection site injury [Unknown]

NARRATIVE: CASE EVENT DATE: 20210110
